FAERS Safety Report 5587831-X (Version None)
Quarter: 2008Q1

REPORT INFORMATION
  Report Type: 
  Country: None (occurrence: None)
  Receive Date: 20080111
  Receipt Date: 20080103
  Transmission Date: 20080703
  Serious: Yes (Hospitalization)
  Sender: FDA-Public Use
  Company Number: FR-SP-2008-00009

PATIENT
  Age: 67 Year
  Sex: Male

DRUGS (1)
  1. IMMUCYST [Suspect]
     Indication: BLADDER CANCER
     Route: 043

REACTIONS (5)
  - BOVINE TUBERCULOSIS [None]
  - CYSTITIS [None]
  - GRANULOMA [None]
  - RENAL MASS [None]
  - URETERIC STENOSIS [None]
